FAERS Safety Report 12921068 (Version 2)
Quarter: 2016Q4

REPORT INFORMATION
  Report Type: Report from Study
  Country: US (occurrence: US)
  Receive Date: 20161107
  Receipt Date: 20161209
  Transmission Date: 20170207
  Serious: Yes (Death, Other)
  Sender: FDA-Public Use
  Company Number: US-GILEAD-2016-0241943

PATIENT
  Age: 58 Year
  Sex: Female
  Weight: 61.68 kg

DRUGS (9)
  1. AMBRISENTAN [Suspect]
     Active Substance: AMBRISENTAN
     Indication: PRODUCT USED FOR UNKNOWN INDICATION
     Dosage: 5 MG, QD
     Route: 048
  2. RECLAST [Concomitant]
     Active Substance: ZOLEDRONIC ACID
  3. LASIX [Concomitant]
     Active Substance: FUROSEMIDE
  4. ORENCIA [Concomitant]
     Active Substance: ABATACEPT
  5. ADCIRCA [Concomitant]
     Active Substance: TADALAFIL
  6. LEVOTHYROXINE. [Concomitant]
     Active Substance: LEVOTHYROXINE
  7. TEMAZEPAM. [Concomitant]
     Active Substance: TEMAZEPAM
  8. ELIQUIS [Concomitant]
     Active Substance: APIXABAN
  9. KLOR-CON [Concomitant]
     Active Substance: POTASSIUM CHLORIDE

REACTIONS (1)
  - Death [Fatal]
